FAERS Safety Report 8875573 (Version 1)
Quarter: 2012Q4

REPORT INFORMATION
  Report Type: 
  Country: US (occurrence: US)
  Receive Date: 20121030
  Receipt Date: 20121030
  Transmission Date: 20130627
  Serious: No
  Sender: FDA-Public Use
  Company Number: US-ABBOTT-12P-163-0963767-00

PATIENT
  Sex: Female
  Weight: 78.09 kg

DRUGS (3)
  1. KALETRA TABLETS 200MG/50MG [Suspect]
     Indication: HIV INFECTION
     Dosage: 2 tabs of 200/50 milligrams per day
     Dates: start: 2008
  2. VIREAD [Concomitant]
     Indication: HIV INFECTION
  3. ISENTRESS [Concomitant]
     Indication: HIV INFECTION

REACTIONS (2)
  - Emotional disorder [Not Recovered/Not Resolved]
  - Tearfulness [Not Recovered/Not Resolved]
